FAERS Safety Report 5037736-8 (Version None)
Quarter: 2006Q2

REPORT INFORMATION
  Report Type: 
  Country: None (occurrence: None)
  Receive Date: 20060626
  Receipt Date: 20060612
  Transmission Date: 20061013
  Serious: Yes (Death, Hospitalization)
  Sender: FDA-Public Use
  Company Number: 225785

PATIENT
  Age: 75 Year
  Sex: Male
  Weight: 66 kg

DRUGS (3)
  1. AVASTIN [Suspect]
     Indication: COLORECTAL CANCER
     Dosage: 500 MG, Q2W, INTRAVENOUS
     Route: 042
     Dates: start: 20060307, end: 20060406
  2. CAPECITABINE (CAPECITABINE) [Suspect]
     Indication: COLORECTAL CANCER
     Dosage: 1500 MG, BID, ORAL
     Route: 048
     Dates: start: 20060307, end: 20060406
  3. IRINOTECAN HCL [Suspect]
     Indication: COLORECTAL CANCER
     Dosage: 400 MG, INTRAVENOUS
     Route: 042
     Dates: start: 20060307, end: 20060406

REACTIONS (8)
  - DEEP VEIN THROMBOSIS [None]
  - EROSIVE DUODENITIS [None]
  - GASTROINTESTINAL HAEMORRHAGE [None]
  - HYPOVOLAEMIC SHOCK [None]
  - NEOPLASM [None]
  - OESOPHAGEAL ULCER [None]
  - OESOPHAGITIS [None]
  - RED BLOOD CELL COUNT DECREASED [None]
